FAERS Safety Report 15127684 (Version 3)
Quarter: 2018Q3

REPORT INFORMATION
  Report Type: Report from Study
  Country: US (occurrence: US)
  Receive Date: 20180710
  Receipt Date: 20180904
  Transmission Date: 20181010
  Serious: Yes (Death, Other)
  Sender: FDA-Public Use
  Company Number: US-EMD SERONO-E2B_90050230

PATIENT
  Sex: Male
  Weight: 100 kg

DRUGS (1)
  1. REBIF [Suspect]
     Active Substance: INTERFERON BETA-1A
     Indication: PRODUCT USED FOR UNKNOWN INDICATION
     Route: 058
     Dates: start: 20051104

REACTIONS (3)
  - Gastrointestinal haemorrhage [Fatal]
  - Diabetes mellitus [Unknown]
  - Hypertension [Unknown]
